FAERS Safety Report 5533869-8 (Version None)
Quarter: 2007Q4

REPORT INFORMATION
  Report Type: 
  Country: None (occurrence: None)
  Receive Date: 20071129
  Receipt Date: 20071122
  Transmission Date: 20080405
  Serious: Yes (Other)
  Sender: FDA-Public Use
  Company Number: TUK2007A00128

PATIENT
  Age: 33 Year
  Sex: Female

DRUGS (6)
  1. ACTOS [Suspect]
     Dosage: 30 MG  ORAL
     Route: 048
     Dates: start: 20070917, end: 20070925
  2. AMLODIPINE [Concomitant]
  3. ATORVASTATIN CALCIUM [Concomitant]
  4. COAPROVEL (HYDROCHLOROTHIAZIDE, IRSESARTAN) [Concomitant]
  5. METFORMIN HCL [Concomitant]
  6. RANITIDINE [Concomitant]

REACTIONS (4)
  - NAUSEA [None]
  - SINUS TACHYCARDIA [None]
  - TREMOR [None]
  - VOMITING [None]
